FAERS Safety Report 8548584-6 (Version None)
Quarter: 2012Q2

REPORT INFORMATION
  Report Type: 
  Country: None (occurrence: None)
  Receive Date: 20120416
  Receipt Date: 20110623
  Transmission Date: 20120825
  Serious: Yes (Other)
  Sender: FDA-Public Use
  Company Number: PHHY2011US38235

PATIENT
  Age: 64 Year
  Sex: Female

DRUGS (10)
  1. DIOVAN [Suspect]
  2. PRAVASTATIN [Concomitant]
  3. TEMAZEPAM [Concomitant]
  4. PROZAC [Concomitant]
  5. TOPROL-XL [Suspect]
     Dosage: 100 MG, 2 PER DAY
  6. CLONIDINE [Suspect]
     Dosage: 0.1 MG,3 PER DAY
  7. PREMARIN [Concomitant]
  8. LORAZEPAM [Concomitant]
  9. VALTURNA [Suspect]
  10. ACTOS (PIOGLITAZONE, PIOGLITAZONE HYDROCHLORIDE) [Concomitant]

REACTIONS (1)
  - HYPERTENSION [None]
